FAERS Safety Report 9212881 (Version 2)
Quarter: 2013Q3

REPORT INFORMATION
  Report Type: Spontaneous
  Country: US (occurrence: US)
  Receive Date: 20130405
  Receipt Date: 20130902
  Transmission Date: 20140515
  Serious: No
  Sender: FDA-Public Use
  Company Number: US-009507513-2012SP023398

PATIENT
  Age: 52 Year
  Sex: Female

DRUGS (3)
  1. VICTRELIS [Suspect]
     Indication: CHRONIC HEPATITIS C
     Dosage: 800 MG (4 CAPSULES), TID, WITH FOOD
     Route: 048
     Dates: start: 20120107
  2. PEGASYS [Suspect]
     Indication: CHRONIC HEPATITIS C
     Dosage: UNK
     Dates: start: 201112
  3. RIBASPHERE [Suspect]
     Indication: CHRONIC HEPATITIS C
     Dosage: UNK
     Dates: start: 201112

REACTIONS (6)
  - Lip ulceration [Unknown]
  - Tongue ulceration [Unknown]
  - Dyspepsia [Unknown]
  - Mouth ulceration [Unknown]
  - Dry mouth [Unknown]
  - Dysgeusia [Unknown]
